FAERS Safety Report 7765258-X (Version None)
Quarter: 2011Q3

REPORT INFORMATION
  Report Type: 
  Country: None (occurrence: None)
  Receive Date: 20110921
  Receipt Date: 20110913
  Transmission Date: 20111222
  Serious: Yes (Hospitalization)
  Sender: FDA-Public Use
  Company Number: JP-GLAXOSMITHKLINE-B0746063A

PATIENT
  Sex: Female
  Weight: 56 kg

DRUGS (9)
  1. DANAZOL [Concomitant]
     Indication: IDIOPATHIC THROMBOCYTOPENIC PURPURA
     Dosage: 200MG PER DAY
     Route: 048
     Dates: end: 20110113
  2. PROMACTA [Suspect]
     Indication: IDIOPATHIC THROMBOCYTOPENIC PURPURA
     Dosage: 12.5MG PER DAY
     Route: 048
     Dates: start: 20101224, end: 20110216
  3. GLYCYRON [Concomitant]
     Dosage: 9IUAX PER DAY
     Route: 048
  4. PROMACTA [Suspect]
     Route: 048
     Dates: start: 20110317, end: 20110330
  5. URSO 250 [Concomitant]
     Dosage: 300MG PER DAY
     Route: 048
  6. PROMACTA [Suspect]
     Dosage: 12.5MG TWICE PER DAY
     Route: 048
     Dates: start: 20110301, end: 20110316
  7. PROMACTA [Suspect]
     Route: 048
     Dates: start: 20110331, end: 20110413
  8. PREDNISOLONE [Concomitant]
     Indication: IDIOPATHIC THROMBOCYTOPENIC PURPURA
     Dosage: 5MG PER DAY
     Route: 048
  9. PROMACTA [Suspect]
     Dosage: 12.5MG PER DAY
     Route: 048
     Dates: start: 20110414

REACTIONS (1)
  - LIVER DISORDER [None]
